FAERS Safety Report 9462818 (Version 2)
Quarter: 2018Q3

REPORT INFORMATION
  Report Type: Report from Study
  Country: GB (occurrence: GB)
  Receive Date: 20130816
  Receipt Date: 20180823
  Transmission Date: 20181010
  Serious: Yes (Other)
  Sender: FDA-Public Use
  Company Number: GB-ROCHE-1262399

PATIENT
  Sex: Female

DRUGS (2)
  1. AZATHIOPRIN [Concomitant]
     Active Substance: AZATHIOPRINE
     Route: 065
  2. MABTHERA [Suspect]
     Active Substance: RITUXIMAB
     Indication: RHEUMATOID ARTHRITIS
     Dosage: IN NOV/2010 : LAST DOSE OF RITUXIMAB.
     Route: 065
     Dates: start: 20080615

REACTIONS (1)
  - Metastases to skin [Unknown]
